FAERS Safety Report 14603035 (Version 2)
Quarter: 2020Q4

REPORT INFORMATION
  Report Type: Other
  Country: DE (occurrence: DE)
  Receive Date: 20180306
  Receipt Date: 20201003
  Transmission Date: 20210113
  Serious: Yes (Other)
  Sender: FDA-Public Use
  Company Number: DE-LUPIN PHARMACEUTICALS INC.-2018-01545

PATIENT
  Age: 37 Year
  Sex: Female
  Weight: 52 kg

DRUGS (6)
  1. MAGNETRANS                         /01486820/ [Concomitant]
     Indication: CONSTIPATION
     Dosage: 600 MG, QD, 2.1 TO 38.3 GESTATIONAL WEEK
     Route: 048
  2. QUETIAPINE. [Suspect]
     Active Substance: QUETIAPINE
     Dosage: 300 MG DAILY ALONG WITH 25 MG NON- RETARD
     Route: 048
     Dates: end: 20170926
  3. BECLOMETASONE [Concomitant]
     Active Substance: BECLOMETHASONE DIPROPIONATE
     Indication: NASAL POLYPS
     Dosage: 100 [MCG/D (PER PAGE 50 MCG) ], 0 TO 38.3 GESTATIONAL WEEK
     Route: 045
     Dates: start: 20161231, end: 20170926
  4. FOLIO                              /00349401/ [Concomitant]
     Active Substance: CYANOCOBALAMIN\FOLIC ACID
     Indication: PROPHYLAXIS OF NEURAL TUBE DEFECT
     Dosage: 0.4 MG, QD, 0 TO 38.3 GESTATIONAL WEEK
     Route: 048
     Dates: start: 20161231, end: 20170926
  5. SKINOREN [Concomitant]
     Active Substance: AZELAIC ACID
     Indication: ACNE
     Dosage: 20 %, UNK, 15 TO 38.3 GESTATIONAL WEEK
     Route: 003
  6. QUETIAPINE. [Suspect]
     Active Substance: QUETIAPINE
     Indication: DEPRESSION
     Dosage: 250 MG, QD
     Route: 048
     Dates: start: 20161231

REACTIONS (2)
  - Gestational diabetes [Recovered/Resolved]
  - Exposure during pregnancy [Unknown]
